FAERS Safety Report 7017964-2 (Version None)
Quarter: 2010Q3

REPORT INFORMATION
  Report Type: 
  Country: None (occurrence: None)
  Receive Date: 20100927
  Receipt Date: 20100927
  Transmission Date: 20110219
  Serious: Yes (Hospitalization)
  Sender: FDA-Public Use
  Company Number: None

PATIENT
  Age: 78 Year
  Sex: Male
  Weight: 72 kg

DRUGS (2)
  1. ASPIRIN [Suspect]
     Indication: CORONARY ARTERY DISEASE
     Dosage: 81 MG EVERY DAY PO
     Route: 048
     Dates: start: 20061005, end: 20100811
  2. WARFARIN SODIUM [Suspect]
     Indication: ATRIAL FIBRILLATION
     Dosage: 5.7 MG EVERY DAY PO
     Route: 048
     Dates: start: 20100709, end: 20100811

REACTIONS (5)
  - DYSPNOEA [None]
  - FATIGUE [None]
  - GASTRIC HAEMORRHAGE [None]
  - HAEMATOCRIT DECREASED [None]
  - INTERNATIONAL NORMALISED RATIO INCREASED [None]
